FAERS Safety Report 5237938-1 (Version None)
Quarter: 2007Q1

REPORT INFORMATION
  Report Type: 
  Country: None (occurrence: None)
  Receive Date: 20070209
  Receipt Date: 20070130
  Transmission Date: 20070707
  Serious: Yes (Other)
  Sender: FDA-Public Use
  Company Number: 230069K07CAN

PATIENT
  Sex: Female

DRUGS (4)
  1. REBIF [Suspect]
     Indication: RELAPSING-REMITTING MULTIPLE SCLEROSIS
     Dates: start: 20061130, end: 20070118
  2. OXYBUTNIN /00538901/ [Concomitant]
  3. FLUOXETINE HYDROCHLORIDE [Concomitant]
  4. ROSUVASTATIN [Concomitant]

REACTIONS (3)
  - HEPATIC ENZYME INCREASED [None]
  - HEPATOMEGALY [None]
  - LIVER TENDERNESS [None]
